FAERS Safety Report 10152100 (Version 1)
Quarter: 2014Q2

REPORT INFORMATION
  Report Type: Report from Study
  Country: US (occurrence: US)
  Receive Date: 20140505
  Receipt Date: 20140505
  Transmission Date: 20141212
  Serious: Yes (Hospitalization)
  Sender: FDA-Public Use
  Company Number: US-ASTELLAS-2014US004558

PATIENT
  Age: 16 Year
  Sex: Female

DRUGS (3)
  1. TACROLIMUS [Suspect]
     Indication: DERMATITIS ATOPIC
     Dosage: 0.1 %, UNKNOWN FREQ.
     Route: 061
     Dates: start: 2000
  2. CYCLOSPORIN [Concomitant]
     Indication: DERMATITIS ATOPIC
     Dosage: UNK UNK, UNKNOWN FREQ.
     Route: 065
  3. EUCERIN                            /00021201/ [Concomitant]
     Indication: DERMATITIS ATOPIC
     Dosage: UNK UNK, UNKNOWN FREQ.
     Route: 065

REACTIONS (2)
  - Dermatitis [Unknown]
  - Off label use [Unknown]
